FAERS Safety Report 24119534 (Version 3)
Quarter: 2025Q2

REPORT INFORMATION
  Report Type: Spontaneous
  Country: US (occurrence: US)
  Receive Date: 20240722
  Receipt Date: 20250403
  Transmission Date: 20250717
  Serious: No
  Sender: TEVA
  Company Number: US-TEVA-VS-3218773

PATIENT
  Age: 64 Year
  Sex: Female

DRUGS (2)
  1. AUSTEDO [Suspect]
     Active Substance: DEUTETRABENAZINE
     Indication: Product used for unknown indication
     Dosage: 12 MG + 9 MG
     Route: 065
  2. AUSTEDO [Suspect]
     Active Substance: DEUTETRABENAZINE
     Indication: Product used for unknown indication
     Dosage: 9 MG, 2 TABLETS BY MOUTH TWICE DAILY
     Route: 048

REACTIONS (3)
  - Feeling abnormal [Unknown]
  - Liver disorder [Unknown]
  - Product use issue [Unknown]
